FAERS Safety Report 9728051 (Version 1)
Quarter: 2013Q4

REPORT INFORMATION
  Report Type: Spontaneous
  Country: FR (occurrence: None)
  Receive Date: 20131127
  Receipt Date: 20131127
  Transmission Date: 20140711
  Serious: Yes (Hospitalization, Other)
  Sender: FDA-Public Use
  Company Number: US-2013-12207

PATIENT
  Age: 58 Year
  Sex: Female

DRUGS (3)
  1. BUSULFEX [Suspect]
     Indication: TRANSPLANT
     Dates: start: 20121214, end: 20121215
  2. FLUDARABINE PHOSPHATE [Suspect]
     Indication: TRANSPLANT
     Dates: start: 20121213, end: 20121217
  3. METHOTREXATE (METHOTREXATE) [Suspect]
     Indication: PRODUCT USED FOR UNKNOWN INDICATION
     Dates: start: 20121219, end: 20121224

REACTIONS (12)
  - Leukoencephalopathy [None]
  - Depression [None]
  - Acute graft versus host disease in intestine [None]
  - Confusional state [None]
  - Amnesia [None]
  - CSF protein increased [None]
  - CSF lactate increased [None]
  - Blindness cortical [None]
  - Leukoencephalomyelitis [None]
  - Disorientation [None]
  - Neurotoxicity [None]
  - Anxiety [None]
